FAERS Safety Report 11645544 (Version 2)
Quarter: 2015Q4

REPORT INFORMATION
  Report Type: Spontaneous
  Country: JP (occurrence: JP)
  Receive Date: 20151020
  Receipt Date: 20151026
  Transmission Date: 20160304
  Serious: Yes (Death, Hospitalization)
  Sender: FDA-Public Use
  Company Number: JP-BAYER-2015-445492

PATIENT
  Age: 25 Year
  Sex: Female
  Weight: 61 kg

DRUGS (6)
  1. PRASUGREL [Interacting]
     Active Substance: PRASUGREL
     Indication: STENT PLACEMENT
     Dosage: DAILY DOSE 3750 MG
     Route: 048
     Dates: start: 20150924
  2. MINIPRESS [Concomitant]
     Active Substance: PRAZOSIN HYDROCHLORIDE
     Indication: RENOVASCULAR HYPERTENSION
     Dosage: DAILY DOSE 1500 MG
     Route: 048
     Dates: start: 20150924
  3. ADALAT CC [Concomitant]
     Active Substance: NIFEDIPINE
     Indication: RENOVASCULAR HYPERTENSION
     Dosage: DAILY DOSE 120 MG
     Route: 048
     Dates: start: 20150924
  4. ENALAPRIL [Concomitant]
     Active Substance: ENALAPRIL
     Indication: RENOVASCULAR HYPERTENSION
     Dosage: DAILY DOSE 5 MG
     Route: 048
     Dates: start: 20150716
  5. BAYASPIRIN [Suspect]
     Active Substance: ASPIRIN
     Indication: STENT PLACEMENT
     Dosage: 100 MG, QD
     Route: 048
     Dates: start: 20150924
  6. PARIET [Concomitant]
     Active Substance: RABEPRAZOLE SODIUM
     Indication: GASTRIC ULCER
     Dosage: DAILY DOSE 10 MG
     Route: 048
     Dates: start: 20150924

REACTIONS (7)
  - Cerebral ventricular rupture [None]
  - Labelled drug-drug interaction medication error [None]
  - Brain oedema [None]
  - Brain midline shift [None]
  - Putamen haemorrhage [Fatal]
  - Subarachnoid haemorrhage [None]
  - Diabetes insipidus [None]

NARRATIVE: CASE EVENT DATE: 20150924
